FAERS Safety Report 9262483 (Version 1)
Quarter: 2013Q2

REPORT INFORMATION
  Report Type: Spontaneous
  Country: BR (occurrence: BR)
  Receive Date: 20130430
  Receipt Date: 20130430
  Transmission Date: 20140414
  Serious: Yes (Hospitalization, Other)
  Sender: FDA-Public Use
  Company Number: BR-AMGEN-BRASP2012019869

PATIENT
  Age: 58 Year
  Sex: Female
  Weight: 64 kg

DRUGS (4)
  1. ENBREL [Suspect]
     Indication: RHEUMATOID ARTHRITIS
     Dosage: 50 MG, ONCE WEEKLY
     Route: 058
     Dates: start: 201110
  2. ENBREL [Suspect]
     Dosage: 25 MG, 2X/WEEK
     Dates: start: 2009
  3. METHOTREXATE [Concomitant]
     Indication: RHEUMATOID ARTHRITIS
     Dosage: 4 TABLETS OF 2.5 MG, QWK
  4. DIACEREIN [Concomitant]
     Dosage: 100 MG, 1X/DAY

REACTIONS (3)
  - Vomiting [Unknown]
  - Urinary tract infection [Not Recovered/Not Resolved]
  - Injection site pain [Unknown]
